FAERS Safety Report 9738728 (Version 1)
Quarter: 2013Q4

REPORT INFORMATION
  Report Type: Report from Study
  Country: DE (occurrence: DE)
  Receive Date: 20131209
  Receipt Date: 20131209
  Transmission Date: 20140711
  Serious: Yes (Hospitalization)
  Sender: FDA-Public Use
  Company Number: DE-ROCHE-1310557

PATIENT
  Age: 54 Year
  Sex: Female

DRUGS (5)
  1. TRASTUZUMAB [Suspect]
     Indication: GASTRIC CANCER
     Dosage: DATE OF LAST ADMINISTRATION BEFORE ONSET OF SAE - 11/APR/2013?DOSE BEFORE ONSET OF SAE- 220 MG
     Route: 042
     Dates: start: 20130227, end: 20130829
  2. TRASTUZUMAB [Suspect]
     Route: 042
     Dates: start: 20130903
  3. NOVALGIN [Concomitant]
     Indication: PAIN
     Route: 048
  4. ONDANSETRON [Concomitant]
     Indication: NAUSEA
     Route: 048
  5. IMODIUM [Concomitant]
     Indication: DIARRHOEA
     Route: 048

REACTIONS (1)
  - Transaminases increased [Recovered/Resolved]
